FAERS Safety Report 10770758 (Version 1)
Quarter: 2015Q1

REPORT INFORMATION
  Report Type: Spontaneous
  Country: US (occurrence: None)
  Receive Date: 20150206
  Receipt Date: 20150206
  Transmission Date: 20150721
  Serious: No
  Sender: FDA-Public Use
  Company Number: HYP201405-000027

PATIENT
  Age: 38 Year
  Sex: Male

DRUGS (6)
  1. CLARITIN [Concomitant]
     Active Substance: LORATADINE
  2. MULTIVITAMIN (ASCORBIC ACID, CALCIUM PANTOTHENATE, ERGOCALCIFEROL, NICOTINAMIDE, PYRIDOXINE HYDROCHLORIDE, RETINOL, RIBOFLAVIN, THIAMINE HYDROCHLORIDE) [Concomitant]
  3. RAVICTI [Suspect]
     Active Substance: GLYCEROL PHENYLBUTYRATE
     Indication: UREA CYCLE ENZYME DEFICIENCY
     Route: 048
     Dates: start: 20140401
  4. FLONASE [Concomitant]
     Active Substance: FLUTICASONE PROPIONATE
  5. LACTULOSE. [Concomitant]
     Active Substance: LACTULOSE
  6. TEGRETOL (CARBAMAZEPINE) [Concomitant]

REACTIONS (1)
  - Agitation [None]

NARRATIVE: CASE EVENT DATE: 20140407
